FAERS Safety Report 9617090 (Version 1)
Quarter: 2013Q4

REPORT INFORMATION
  Report Type: Not Available
  Country: US (occurrence: US)
  Receive Date: 20131011
  Receipt Date: 20131011
  Transmission Date: 20140711
  Serious: No
  Sender: FDA-Public Use
  Company Number: US-TARO-2012P1060285

PATIENT
  Age: 31 Month
  Sex: Female

DRUGS (2)
  1. LORATADINE SYRUP (LORATADINE ORAL SOLUTION USP) 5MG/5ML [Suspect]
     Route: 048
  2. LORATADINE SYRUP (LORATADINE ORAL SOLUTION USP) 5MG/5ML [Suspect]
     Route: 048
     Dates: start: 20121001, end: 20121001

REACTIONS (2)
  - Accidental overdose [Recovered/Resolved]
  - Somnolence [Recovered/Resolved]
